FAERS Safety Report 7464945-0 (Version None)
Quarter: 2011Q2

REPORT INFORMATION
  Report Type: 
  Country: None (occurrence: None)
  Receive Date: 20110509
  Receipt Date: 20110425
  Transmission Date: 20111010
  Serious: No
  Sender: FDA-Public Use
  Company Number: US-JNJFOC-20110411214

PATIENT
  Sex: Female
  Weight: 73.03 kg

DRUGS (8)
  1. VICODIN [Concomitant]
     Indication: PAIN IN EXTREMITY
     Route: 048
  2. MUSCLE RELAXANT [Concomitant]
     Indication: PAIN IN EXTREMITY
     Route: 048
  3. FENTANYL-100 [Suspect]
     Indication: PAIN IN EXTREMITY
     Route: 062
  4. FENTANYL-100 [Suspect]
     Indication: BACK PAIN
     Route: 062
  5. FENTANYL-100 [Suspect]
     Route: 062
  6. MUSCLE RELAXANT [Concomitant]
     Indication: BACK PAIN
     Route: 048
  7. FENTANYL-100 [Suspect]
     Route: 062
  8. VICODIN [Concomitant]
     Indication: BACK PAIN
     Route: 048

REACTIONS (3)
  - WRONG TECHNIQUE IN DRUG USAGE PROCESS [None]
  - PAIN [None]
  - EXPIRED DRUG ADMINISTERED [None]
